FAERS Safety Report 9016010 (Version 1)
Quarter: 2013Q1

REPORT INFORMATION
  Report Type: Spontaneous
  Country: US (occurrence: US)
  Receive Date: 20130116
  Receipt Date: 20130116
  Transmission Date: 20140127
  Serious: Yes (Other)
  Sender: FDA-Public Use
  Company Number: US-009507513-1301XAA003527

PATIENT
  Age: 3 Year
  Sex: Male

DRUGS (3)
  1. SINGULAIR [Suspect]
     Indication: ALLERGIC RESPIRATORY DISEASE
     Dosage: 1SAC AT NIGHT UNK
  2. SINGULAIR [Suspect]
     Indication: PRODUCT USED FOR UNKNOWN INDICATION
  3. FLUTICASONE PROPIONATE (+) SALMETEROL XINAFOATE [Suspect]
     Dosage: 1PUFF TWICE PER DAY
     Route: 055

REACTIONS (5)
  - Tachycardia [Unknown]
  - Dyspnoea [Unknown]
  - Cough [Unknown]
  - Asthenia [Unknown]
  - Asphyxia [Unknown]
